FAERS Safety Report 5307899-5 (Version None)
Quarter: 2007Q1

REPORT INFORMATION
  Report Type: 
  Country: None (occurrence: None)
  Receive Date: 20070201
  Receipt Date: 20061223
  Transmission Date: 20070707
  Serious: No
  Sender: FDA-Public Use
  Company Number: 2006PV027420

PATIENT
  Age: 60 Year
  Sex: Female
  Weight: 105.6881 kg

DRUGS (2)
  1. BYETTA [Suspect]
     Indication: INSULIN RESISTANCE
     Dosage: SEE IMAGE
     Route: 058
     Dates: start: 20061101, end: 20061201
  2. BYETTA [Suspect]
     Indication: INSULIN RESISTANCE
     Dosage: SEE IMAGE
     Route: 058
     Dates: start: 20061201

REACTIONS (2)
  - INJECTION SITE BRUISING [None]
  - WEIGHT DECREASED [None]
